FAERS Safety Report 9684172 (Version 2)
Quarter: 2014Q2

REPORT INFORMATION
  Report Type: Spontaneous
  Country: US (occurrence: US)
  Receive Date: 20131112
  Receipt Date: 20140424
  Transmission Date: 20141212
  Serious: Yes (Death, Hospitalization)
  Sender: FDA-Public Use
  Company Number: US-B.I. PHARMACEUTICALS,INC./RIDGEFIELD-2013-BI-36407BP

PATIENT
  Age: 86 Year
  Sex: Female
  Weight: 70.31 kg

DRUGS (1)
  1. PRADAXA [Suspect]
     Indication: ATRIAL FIBRILLATION
     Dosage: 150 MG
     Route: 065
     Dates: start: 20110909, end: 20120917

REACTIONS (3)
  - Subdural haematoma [Fatal]
  - Haemorrhage intracranial [Fatal]
  - Fall [Unknown]
